FAERS Safety Report 8439140-9 (Version None)
Quarter: 2012Q2

REPORT INFORMATION
  Report Type: 
  Country: None (occurrence: None)
  Receive Date: 20120615
  Receipt Date: 20120605
  Transmission Date: 20120825
  Serious: Yes (Other)
  Sender: FDA-Public Use
  Company Number: FR-BRISTOL-MYERS SQUIBB COMPANY-16670341

PATIENT
  Age: 31 Year
  Sex: Female

DRUGS (2)
  1. ABILIFY [Suspect]
     Dosage: 10 MG DISCMELT TABLETS 2/D (ONE IN THE MORNING, ONE IN THE EVENING)
     Dates: start: 20120319
  2. STABLON [Concomitant]
     Dates: start: 20120503

REACTIONS (8)
  - NERVOUSNESS [None]
  - DEPRESSION [None]
  - DELUSION [None]
  - TREATMENT NONCOMPLIANCE [None]
  - FEELING ABNORMAL [None]
  - DECREASED APPETITE [None]
  - AGITATION [None]
  - ALOPECIA [None]
